FAERS Safety Report 4587376-X (Version None)
Quarter: 2005Q1

REPORT INFORMATION
  Report Type: 
  Country: None (occurrence: None)
  Receive Date: 20050216
  Receipt Date: 20050203
  Transmission Date: 20050727
  Serious: Yes (Other)
  Sender: FDA-Public Use
  Company Number: US-JNJFOC-20041202694

PATIENT
  Sex: Female
  Weight: 63.5 kg

DRUGS (8)
  1. REMICADE [Suspect]
     Indication: RHEUMATOID ARTHRITIS
     Route: 042
  2. METHOTREXATE [Concomitant]
     Indication: RHEUMATOID ARTHRITIS
  3. SYNTHROID [Concomitant]
     Indication: THYROIDITIS
  4. FOLIC ACID [Concomitant]
     Indication: NUTRITIONAL SUPPORT
  5. LEXAPRO [Concomitant]
  6. B12 [Concomitant]
     Indication: NEUROPATHY
  7. B12 [Concomitant]
     Indication: VITAMIN B12 DEFICIENCY
  8. VIOXX [Concomitant]
     Indication: RHEUMATOID ARTHRITIS

REACTIONS (2)
  - ANTINUCLEAR ANTIBODY POSITIVE [None]
  - CUTANEOUS LUPUS ERYTHEMATOSUS [None]
